FAERS Safety Report 7934909-9 (Version None)
Quarter: 2011Q4

REPORT INFORMATION
  Report Type: 
  Country: None (occurrence: None)
  Receive Date: 20111122
  Receipt Date: 20111117
  Transmission Date: 20120403
  Serious: Yes (Other)
  Sender: FDA-Public Use
  Company Number: US-PFIZER INC-2011283086

PATIENT
  Sex: Female

DRUGS (3)
  1. LYRICA [Suspect]
     Dosage: UNK
  2. PREMPRO [Suspect]
     Dosage: UNK
  3. MOTRIN [Suspect]
     Dosage: UNK

REACTIONS (1)
  - VISION BLURRED [None]
